FAERS Safety Report 9258366 (Version 2)
Quarter: 2013Q2

REPORT INFORMATION
  Report Type: Other
  Country: JP (occurrence: JP)
  Receive Date: 20130426
  Receipt Date: 20130522
  Transmission Date: 20140414
  Serious: Yes (Life-Threatening)
  Sender: FDA-Public Use
  Company Number: JP-BRISTOL-MYERS SQUIBB COMPANY-18795666

PATIENT
  Age: 33 Year
  Sex: Female
  Weight: 78 kg

DRUGS (3)
  1. BRIPLATIN [Suspect]
     Indication: OVARIAN NEOPLASM
     Dosage: DAYS 1-5.
  2. ETOPOSIDE [Suspect]
     Indication: OVARIAN NEOPLASM
     Dosage: DAYS 1-5.
  3. BLEOMYCIN SULFATE [Suspect]
     Indication: OVARIAN NEOPLASM
     Dosage: DAY 2,9 AND 16.

REACTIONS (1)
  - Embolism [Unknown]
